FAERS Safety Report 9877218 (Version 1)
Quarter: 2014Q1

REPORT INFORMATION
  Report Type: Spontaneous
  Country: FR (occurrence: FR)
  Receive Date: 20140206
  Receipt Date: 20140206
  Transmission Date: 20141002
  Serious: Yes (Hospitalization)
  Sender: FDA-Public Use
  Company Number: PHHY2014FR012928

PATIENT
  Age: 38 Year
  Sex: Female

DRUGS (6)
  1. SIGNIFOR [Suspect]
     Indication: PITUITARY-DEPENDENT CUSHING^S SYNDROME
     Dosage: 600 UG, BID
     Route: 058
     Dates: start: 20140107, end: 20140113
  2. METOPIRON [Concomitant]
     Indication: CUSHING^S SYNDROME
     Dosage: 3750 MG, DAILY
  3. HYDROCORTISONE [Concomitant]
     Dosage: 15 MG, DAILY
     Route: 048
  4. LEVOTHYROXINE SODIUM [Concomitant]
     Dosage: 125 UG, QD
     Route: 048
  5. DOSTINEX [Concomitant]
     Dosage: 0.25 MG FROM MONDAY TO FRIDAYA ND 0.5MG FROM SATURDAY TO SUNDAY
  6. DIFFU-K [Concomitant]
     Dosage: 1 DF, TID

REACTIONS (1)
  - Application site vesicles [Recovered/Resolved]
